FAERS Safety Report 12263009 (Version 3)
Quarter: 2016Q2

REPORT INFORMATION
  Report Type: Spontaneous
  Country: US (occurrence: US)
  Receive Date: 20160413
  Receipt Date: 20160516
  Transmission Date: 20160815
  Serious: No
  Sender: FDA-Public Use
  Company Number: US-PFIZER INC-2016169100

PATIENT
  Age: 73 Year
  Sex: Female
  Weight: 73 kg

DRUGS (15)
  1. ORENCIA [Concomitant]
     Active Substance: ABATACEPT
     Indication: RHEUMATOID ARTHRITIS
     Dosage: UNK
     Dates: start: 201505, end: 201511
  2. ADVIL [Suspect]
     Active Substance: IBUPROFEN
     Indication: RHEUMATOID ARTHRITIS
     Dosage: 200 MG, 1X/DAY
     Dates: start: 201507
  3. IBUPROFEN. [Suspect]
     Active Substance: IBUPROFEN
     Indication: RHEUMATOID ARTHRITIS
     Dosage: 200 MG, 1X/DAY
     Dates: start: 201506
  4. REMICADE [Concomitant]
     Active Substance: INFLIXIMAB
     Dosage: UNK
     Dates: start: 201412, end: 201504
  5. REMICADE [Concomitant]
     Active Substance: INFLIXIMAB
     Indication: PAIN
     Dosage: 1 DF, DAILY (AT BED TIME)INFUSION)
     Dates: start: 201506, end: 201508
  6. REMICADE [Concomitant]
     Active Substance: INFLIXIMAB
     Indication: RHEUMATOID ARTHRITIS
     Dosage: INFUSION EVERY FOUR WEEKS
     Dates: start: 201506, end: 201508
  7. CALCIUM + VIT D [Concomitant]
     Active Substance: CALCIUM\VITAMIN D
     Dosage: 500 MG, ONCE
  8. IBUPROFEN. [Suspect]
     Active Substance: IBUPROFEN
     Indication: PAIN
     Dosage: 200 MG, LIQUID SOFT GELS, TWO AT BEDTIME
  9. ORENCIA [Concomitant]
     Active Substance: ABATACEPT
     Indication: PAIN
     Dosage: 1 DAILY, (AT BED TIME)INFUSION
     Dates: start: 201509, end: 201511
  10. ACTEMRA [Concomitant]
     Active Substance: TOCILIZUMAB
     Indication: PAIN
     Dosage: 1 DF, DAILY (AT BED TIME)
     Dates: start: 201512
  11. ATORVASTATIN CALCIUM. [Concomitant]
     Active Substance: ATORVASTATIN CALCIUM
     Dosage: ? TABLET 1X/DAY TAKING FOR ABOUT 3 YEARS.
  12. ADVIL [Suspect]
     Active Substance: IBUPROFEN
     Indication: PAIN
     Dosage: 200 MG, ONE AFTER LUNCH AND ONE AT NIGHT
     Route: 048
  13. ACTEMRA [Concomitant]
     Active Substance: TOCILIZUMAB
     Dosage: 600 MG, UNK (TAKE MONTHLY INFUSION)
     Dates: start: 201512
  14. ATORVASTATIN CALCIUM. [Concomitant]
     Active Substance: ATORVASTATIN CALCIUM
     Dosage: 5 MG, DAILY
  15. ADVIL [Suspect]
     Active Substance: IBUPROFEN
     Dosage: 200 MG, 1X/DAY
     Dates: start: 201507

REACTIONS (3)
  - Pain [Not Recovered/Not Resolved]
  - Dysgeusia [Not Recovered/Not Resolved]
  - Product taste abnormal [Not Recovered/Not Resolved]

NARRATIVE: CASE EVENT DATE: 2015
